FAERS Safety Report 7844720-5 (Version None)
Quarter: 2011Q4

REPORT INFORMATION
  Report Type: 
  Country: None (occurrence: None)
  Receive Date: 20111017
  Receipt Date: 20111011
  Transmission Date: 20120403
  Serious: Yes (Death, Hospitalization)
  Sender: FDA-Public Use
  Company Number: 2011SP033952

PATIENT
  Age: 26 Year
  Sex: Female

DRUGS (2)
  1. VARNOLINE (DESOGESTREL/ETHINYLESTRADIOL /00570801/) [Suspect]
     Indication: CONTRACEPTION
     Dates: start: 20010101
  2. DESOGRESTREL/ETHINYLESTRADIOL BIOGARAN (MARVELON) [Suspect]
     Indication: CONTRACEPTION
     Dates: start: 20060101

REACTIONS (14)
  - KLEBSIELLA INFECTION [None]
  - MUSCLE SPASMS [None]
  - CARDIO-RESPIRATORY ARREST [None]
  - CEREBRAL ISCHAEMIA [None]
  - MALAISE [None]
  - LOSS OF CONSCIOUSNESS [None]
  - CYSTITIS [None]
  - PULMONARY EMBOLISM [None]
  - LUNG DISORDER [None]
  - MIGRAINE [None]
  - BRAIN OEDEMA [None]
  - STAPHYLOCOCCAL INFECTION [None]
  - VULVOVAGINAL BURNING SENSATION [None]
  - FUNGAL INFECTION [None]
